FAERS Safety Report 4794279-4 (Version None)
Quarter: 2005Q4

REPORT INFORMATION
  Report Type: 
  Country: None (occurrence: None)
  Receive Date: 20051011
  Receipt Date: 20050929
  Transmission Date: 20060501
  Serious: Yes (Other)
  Sender: FDA-Public Use
  Company Number: US-GLAXOSMITHKLINE-B0396058A

PATIENT

DRUGS (2)
  1. TOPOTECAN [Suspect]
     Indication: NEOPLASM MALIGNANT
     Dosage: .4MGM2 PER DAY
     Route: 048
  2. DOXIL [Suspect]
     Indication: NEOPLASM MALIGNANT
     Dosage: 40MGM2 PER DAY
     Route: 042

REACTIONS (1)
  - SMALL INTESTINAL OBSTRUCTION [None]
